FAERS Safety Report 4351848-3 (Version None)
Quarter: 2004Q2

REPORT INFORMATION
  Report Type: 
  Country: None (occurrence: None)
  Receive Date: 20040429
  Receipt Date: 20040119
  Transmission Date: 20050107
  Serious: No
  Sender: FDA-Public Use
  Company Number: 2004-112129-NL

PATIENT
  Age: 28 Year
  Sex: Female
  Weight: 99.8 kg

DRUGS (2)
  1. NUVARING [Suspect]
     Dosage: DF DAILY
     Dates: start: 20030901
  2. PROZAC [Concomitant]

REACTIONS (2)
  - NAUSEA [None]
  - UNINTENDED PREGNANCY [None]
